FAERS Safety Report 4918895-1 (Version None)
Quarter: 2006Q1

REPORT INFORMATION
  Report Type: 
  Country: None (occurrence: None)
  Receive Date: 20060222
  Receipt Date: 20060120
  Transmission Date: 20060701
  Serious: Yes (Other)
  Sender: FDA-Public Use
  Company Number: US-ROCHE-433153

PATIENT
  Age: 38 Year
  Sex: Female

DRUGS (2)
  1. PEGASYS [Suspect]
     Indication: HEPATITIS C
     Dosage: THE PATIENT RECEIVED A TOTAL OF 7 SHOTS.
     Route: 058
     Dates: start: 20050921, end: 20051101
  2. COPEGUS [Suspect]
     Indication: HEPATITIS C
     Route: 048
     Dates: start: 20050921, end: 20051101

REACTIONS (4)
  - ALOPECIA [None]
  - DEHYDRATION [None]
  - PNEUMONIA [None]
  - STOMATITIS [None]
